FAERS Safety Report 20471299 (Version 1)
Quarter: 2022Q1

REPORT INFORMATION
  Report Type: Spontaneous
  Country: US (occurrence: None)
  Receive Date: 20220211
  Receipt Date: 20220211
  Transmission Date: 20220424
  Serious: Yes (Hospitalization)
  Sender: FDA-Public Use
  Company Number: None

PATIENT
  Age: 82 Year
  Sex: Male
  Weight: 83.91 kg

DRUGS (20)
  1. TEMOZOLOMIDE [Suspect]
     Active Substance: TEMOZOLOMIDE
     Indication: Ear neoplasm malignant
     Dosage: FREQUENCY : DAILY;?
     Route: 048
     Dates: start: 20211026
  2. ALLOPURINOL [Concomitant]
     Active Substance: ALLOPURINOL
  3. ARICEPT [Concomitant]
     Active Substance: DONEPEZIL HYDROCHLORIDE
  4. ASPIRIN [Concomitant]
     Active Substance: ASPIRIN
  5. ATORVASTATIN [Concomitant]
     Active Substance: ATORVASTATIN
  6. CALTRATE [Concomitant]
     Active Substance: CALCIUM CARBONATE
  7. CLONIDINE [Concomitant]
     Active Substance: CLONIDINE
  8. COREG [Concomitant]
     Active Substance: CARVEDILOL
  9. DICYCLOMINE [Concomitant]
     Active Substance: DICYCLOMINE HYDROCHLORIDE
  10. DOXAZOSIN [Concomitant]
     Active Substance: DOXAZOSIN MESYLATE
  11. ENALAPRIL [Concomitant]
     Active Substance: ENALAPRIL
  12. HYDRALAZINE [Concomitant]
     Active Substance: HYDRALAZINE HYDROCHLORIDE
  13. LEVOTHYROXINE [Concomitant]
     Active Substance: LEVOTHYROXINE
  14. MONTELUKAST [Concomitant]
     Active Substance: MONTELUKAST SODIUM
  15. NORVASC [Concomitant]
     Active Substance: AMLODIPINE BESYLATE
  16. OMEGA [Concomitant]
  17. PHENOBARBITAL [Concomitant]
     Active Substance: PHENOBARBITAL
  18. PLAVIX [Concomitant]
     Active Substance: CLOPIDOGREL BISULFATE
  19. PREDNISONE [Concomitant]
     Active Substance: PREDNISONE
  20. SPIRNOLACTONE [Concomitant]

REACTIONS (1)
  - Urinary tract infection [None]

NARRATIVE: CASE EVENT DATE: 20220210
